FAERS Safety Report 10491912 (Version 1)
Quarter: 2014Q4

REPORT INFORMATION
  Report Type: Spontaneous
  Country: US (occurrence: US)
  Receive Date: 20141002
  Receipt Date: 20141002
  Transmission Date: 20150528
  Serious: No
  Sender: FDA-Public Use
  Company Number: US-GLAXOSMITHKLINE-A1061775A

PATIENT
  Age: 25 Year
  Sex: Male
  Weight: 79.1 kg

DRUGS (2)
  1. VENTOLIN HFA [Suspect]
     Active Substance: ALBUTEROL SULFATE
     Indication: PRODUCT USED FOR UNKNOWN INDICATION
     Dates: start: 20140122
  2. ADVAIR HFA [Suspect]
     Active Substance: FLUTICASONE PROPIONATE\SALMETEROL XINAFOATE
     Indication: ASTHMA
     Dates: start: 20140121

REACTIONS (4)
  - Discomfort [Unknown]
  - Abdominal pain upper [Unknown]
  - Retching [Unknown]
  - Cough [Unknown]

NARRATIVE: CASE EVENT DATE: 20140121
